FAERS Safety Report 23232101 (Version 1)
Quarter: 2023Q4

REPORT INFORMATION
  Report Type: Spontaneous
  Country: DE (occurrence: DE)
  Receive Date: 20231127
  Receipt Date: 20231127
  Transmission Date: 20240110
  Serious: Yes (Other)
  Sender: FDA-Public Use
  Company Number: DE-PIRAMAL CRITICAL CARE LIMITED-2023-PPL-000521

PATIENT
  Age: 11 Year
  Sex: Female

DRUGS (5)
  1. PROPOFOL [Suspect]
     Active Substance: PROPOFOL
     Indication: Sedation
     Dosage: UNK
  2. SUFENTANIL [Suspect]
     Active Substance: SUFENTANIL
     Indication: Sedation
     Dosage: UNK?BDF-0096
  3. MIDAZOLAM [Suspect]
     Active Substance: MIDAZOLAM
     Indication: Sedation
     Dosage: UNK
  4. THIOPENTAL [Suspect]
     Active Substance: THIOPENTAL
     Indication: Sedation
     Dosage: UNK
  5. ISOFLURANE [Suspect]
     Active Substance: ISOFLURANE
     Indication: Sedation
     Dosage: UNK?BDF-0096?ROA-20020000
     Route: 055

REACTIONS (3)
  - Intracranial pressure increased [Unknown]
  - Vasospasm [Recovered/Resolved]
  - Product use in unapproved indication [Unknown]

NARRATIVE: CASE EVENT DATE: 20231028
